FAERS Safety Report 11966545 (Version 1)
Quarter: 2016Q1

REPORT INFORMATION
  Report Type: Other
  Country: US (occurrence: US)
  Receive Date: 20160127
  Receipt Date: 20160127
  Transmission Date: 20160526
  Serious: Yes (Other)
  Sender: FDA-Public Use
  Company Number: US-SHIRE-US201600365

PATIENT
  Age: 34 Year
  Sex: Male

DRUGS (1)
  1. ADDERALL XR [Suspect]
     Active Substance: AMPHETAMINE ASPARTATE\AMPHETAMINE SULFATE\DEXTROAMPHETAMINE SACCHARATE\DEXTROAMPHETAMINE SULFATE
     Indication: DRUG DIVERSION
     Dosage: UNK, UNKNOWN
     Route: 045

REACTIONS (3)
  - Drug diversion [Unknown]
  - Therapeutic response unexpected [Unknown]
  - Drug abuse [Unknown]
